FAERS Safety Report 6025704-9 (Version None)
Quarter: 2008Q4

REPORT INFORMATION
  Report Type: 
  Country: None (occurrence: None)
  Receive Date: 20081231
  Receipt Date: 20081226
  Transmission Date: 20090506
  Serious: Yes (Hospitalization)
  Sender: FDA-Public Use
  Company Number: US-GENENTECH-274638

PATIENT
  Sex: Female
  Weight: 67.574 kg

DRUGS (2)
  1. BEVACIZUMAB [Suspect]
     Indication: RECTAL CANCER
     Dosage: 339 MG, UNK
     Dates: start: 20081119
  2. FLUOROURACIL [Concomitant]
     Indication: RECTAL CANCER
     Dosage: 396 MG, QD
     Dates: start: 20081119

REACTIONS (1)
  - EXCORIATION [None]
